FAERS Safety Report 9415704 (Version 1)
Quarter: 2013Q3

REPORT INFORMATION
  Report Type: Spontaneous
  Country: US (occurrence: US)
  Receive Date: 20130723
  Receipt Date: 20130723
  Transmission Date: 20140515
  Serious: Yes (Other)
  Sender: FDA-Public Use
  Company Number: US-RB-056350-13

PATIENT
  Sex: Male

DRUGS (1)
  1. BUPRENORPHINE UNSPECIFIED [Suspect]
     Indication: DRUG DEPENDENCE
     Dosage: DOSAGE DETAILS NOT PROVIDED
     Route: 060
     Dates: start: 201307, end: 201307

REACTIONS (4)
  - Cerebrovascular accident [Unknown]
  - Dizziness [Unknown]
  - Urinary incontinence [Unknown]
  - Somnolence [Unknown]
